FAERS Safety Report 6836980-4 (Version None)
Quarter: 2010Q3

REPORT INFORMATION
  Report Type: 
  Country: None (occurrence: None)
  Receive Date: 20100713
  Receipt Date: 20100628
  Transmission Date: 20110219
  Serious: No
  Sender: FDA-Public Use
  Company Number: US-B.I. PHARMACEUTICALS,INC./RIDGEFIELD-2008-BP-16246BP

PATIENT
  Sex: Female

DRUGS (2)
  1. SPIRIVA [Suspect]
     Indication: CHRONIC OBSTRUCTIVE PULMONARY DISEASE
     Dosage: 18 MCG
     Route: 055
     Dates: start: 20100628
  2. SPIRIVA [Suspect]
     Dosage: 18 MCG
     Route: 055
     Dates: start: 20060101, end: 20100624

REACTIONS (6)
  - DERMATITIS [None]
  - GINGIVAL PAIN [None]
  - HAIR GROWTH ABNORMAL [None]
  - OROPHARYNGEAL PAIN [None]
  - PRURITUS [None]
  - SINUSITIS [None]
